FAERS Safety Report 7014257-4 (Version None)
Quarter: 2010Q3

REPORT INFORMATION
  Report Type: 
  Country: None (occurrence: None)
  Receive Date: 20100924
  Receipt Date: 20100924
  Transmission Date: 20110219
  Serious: Yes (Life-Threatening, Hospitalization)
  Sender: FDA-Public Use
  Company Number: None

PATIENT
  Age: 82 Year
  Sex: Male
  Weight: 65.77 kg

DRUGS (4)
  1. CLOPIDOGREL [Suspect]
     Indication: EJECTION FRACTION DECREASED
     Dosage: 75 MG EVERY DAY PO
     Route: 048
     Dates: start: 20040419, end: 20100914
  2. CLOPIDOGREL [Suspect]
     Indication: ISCHAEMIC CARDIOMYOPATHY
     Dosage: 75 MG EVERY DAY PO
     Route: 048
     Dates: start: 20040419, end: 20100914
  3. ASPIRIN [Suspect]
     Indication: EJECTION FRACTION DECREASED
     Dosage: 81 MG EVERY DAY PO
     Route: 048
     Dates: start: 20040419, end: 20100914
  4. ASPIRIN [Suspect]
     Indication: ISCHAEMIC CARDIOMYOPATHY
     Dosage: 81 MG EVERY DAY PO
     Route: 048
     Dates: start: 20040419, end: 20100914

REACTIONS (4)
  - GASTRIC ULCER [None]
  - GASTROINTESTINAL HAEMORRHAGE [None]
  - OESOPHAGEAL ULCER [None]
  - SMALL INTESTINE ULCER [None]
